FAERS Safety Report 8811089 (Version 1)
Quarter: 2012Q4

REPORT INFORMATION
  Report Type: Spontaneous
  Country: US (occurrence: None)
  Receive Date: 20120924
  Receipt Date: 20120924
  Transmission Date: 20130627
  Serious: Yes (Hospitalization)
  Sender: FDA-Public Use
  Company Number: 2012HGS-003947

PATIENT
  Age: 57 Year
  Sex: Female
  Weight: 74.39 kg

DRUGS (11)
  1. BENLYSTA [Suspect]
     Indication: SYSTEMIC LUPUS ERYTHEMATOSUS
     Dosage: 1 in 28 D, Intravenous drip
     Route: 041
     Dates: start: 20111101, end: 20120905
  2. TRICOR [Concomitant]
  3. ATENOLOL (ATENOLOL) (ATENOLOL) [Concomitant]
  4. GLIPIZIDE (GLIPIZIDE) (GLIPIZIDE) [Concomitant]
  5. JANUVIA (SITAGLIPTIN PHOSPHATE) (SITAGLIPTIN PHOSPHATE) [Concomitant]
  6. LANTUS (INSULIN GLARGINE) (INSULIN GLARGINE) [Concomitant]
  7. NOVOLOG (INSULIN ASPART) (INSULIN ASPART) [Concomitant]
  8. PLAQUENIL (HYDROXYCHLOROQUINE SULFATE) (HYDROXYCHLOROQUINE SULFATE) [Concomitant]
  9. VITAMIN D (ERGOCALCIFEROL) (ERGOCALCIFEROL) [Concomitant]
  10. SINGULAIR (MONTELUKAST SODIUM) (MONTELUKAST SODIUM) [Concomitant]
  11. FOLIC ACID (FOLIC ACID) (FOLIC ACID) [Concomitant]

REACTIONS (3)
  - Hypoglycaemia [None]
  - Asthenia [None]
  - Loss of consciousness [None]
